FAERS Safety Report 25390939 (Version 2)
Quarter: 2025Q4

REPORT INFORMATION
  Report Type: Spontaneous
  Country: US (occurrence: US)
  Receive Date: 20250603
  Receipt Date: 20251017
  Transmission Date: 20260117
  Serious: No
  Sender: ROCHE
  Company Number: US-ROCHE-10000301167

PATIENT
  Age: 31 Year
  Sex: Male

DRUGS (3)
  1. HEMLIBRA [Suspect]
     Active Substance: EMICIZUMAB-KXWH
     Indication: Factor VIII deficiency
     Dosage: STRENGTH- 300MG/2ML
     Route: 058
     Dates: start: 202503
  2. ADVATE INJECTION [Concomitant]
  3. ALTUVIIIO INJECTION [Concomitant]

REACTIONS (2)
  - Gastritis [Unknown]
  - Abdominal pain upper [Unknown]

NARRATIVE: CASE EVENT DATE: 20250502
